FAERS Safety Report 21716401 (Version 1)
Quarter: 2022Q4

REPORT INFORMATION
  Report Type: Spontaneous
  Country: US (occurrence: US)
  Receive Date: 20221212
  Receipt Date: 20221212
  Transmission Date: 20230113
  Serious: No
  Sender: FDA-Public Use
  Company Number: US-GBT-014538

PATIENT
  Sex: Female

DRUGS (1)
  1. OXBRYTA [Suspect]
     Active Substance: VOXELOTOR
     Indication: Product used for unknown indication
     Route: 048
     Dates: end: 20220630

REACTIONS (7)
  - Muscular weakness [Unknown]
  - Abdominal pain upper [Unknown]
  - Headache [Unknown]
  - Diarrhoea [Unknown]
  - Rash [Unknown]
  - Therapy interrupted [Unknown]
  - Off label use [Unknown]
